FAERS Safety Report 6266117-4 (Version None)
Quarter: 2009Q3

REPORT INFORMATION
  Report Type: 
  Country: None (occurrence: None)
  Receive Date: 20090713
  Receipt Date: 20090707
  Transmission Date: 20100115
  Serious: Yes (Hospitalization, Other)
  Sender: FDA-Public Use
  Company Number: AR-BRISTOL-MYERS SQUIBB COMPANY-14682033

PATIENT
  Sex: Female

DRUGS (1)
  1. ORENCIA [Suspect]
     Dosage: RECEIVED THIRD INFUSION ON 17JUN09

REACTIONS (6)
  - FEBRILE NEUTROPENIA [None]
  - LEUKOPENIA [None]
  - ORAL CANDIDIASIS [None]
  - PLEURAL EFFUSION [None]
  - PNEUMONIA [None]
  - PULMONARY MASS [None]
